FAERS Safety Report 6817108-3 (Version None)
Quarter: 2010Q2

REPORT INFORMATION
  Report Type: 
  Country: None (occurrence: None)
  Receive Date: 20100630
  Receipt Date: 20100621
  Transmission Date: 20101027
  Serious: Yes (Death)
  Sender: FDA-Public Use
  Company Number: 2010US002314

PATIENT
  Age: 29 Year

DRUGS (4)
  1. PROGRAF [Suspect]
     Indication: AUTOIMMUNE HEPATITIS
     Dosage: 2 MG,
     Dates: start: 20100104
  2. PREDNISOLONE [Concomitant]
  3. FUROSEMIDE [Concomitant]
  4. USARCOL [Concomitant]

REACTIONS (1)
  - CARDIO-RESPIRATORY ARREST [None]
